FAERS Safety Report 25058226 (Version 1)
Quarter: 2025Q1

REPORT INFORMATION
  Report Type: Spontaneous
  Country: US (occurrence: US)
  Receive Date: 20250310
  Receipt Date: 20250310
  Transmission Date: 20250408
  Serious: Yes (Other)
  Sender: PFIZER
  Company Number: US-PFIZER INC-202500051338

PATIENT
  Age: 48 Year
  Sex: Female

DRUGS (2)
  1. VELSIPITY [Suspect]
     Active Substance: ETRASIMOD ARGININE
     Dosage: 2 MG, 1X/DAY
     Route: 048
  2. BALSALAZIDE [Concomitant]
     Active Substance: BALSALAZIDE

REACTIONS (4)
  - Colitis ulcerative [Unknown]
  - Nausea [Unknown]
  - Bowel movement irregularity [Unknown]
  - Vomiting [Unknown]
